FAERS Safety Report 23537298 (Version 1)
Quarter: 2024Q1

REPORT INFORMATION
  Report Type: Spontaneous
  Country: US (occurrence: US)
  Receive Date: 20240219
  Receipt Date: 20240219
  Transmission Date: 20240410
  Serious: No
  Sender: FDA-Public Use
  Company Number: US-SA-SAC20240209001103

PATIENT
  Sex: Female

DRUGS (30)
  1. AUBAGIO [Suspect]
     Active Substance: TERIFLUNOMIDE
     Indication: Multiple sclerosis
     Dosage: 1 DF, QD
     Route: 048
  2. ASPIRIN [Concomitant]
     Active Substance: ASPIRIN
     Dosage: UNK
  3. CALCIUM [Concomitant]
     Active Substance: CALCIUM
     Dosage: UNK
  4. ESTRACE [Concomitant]
     Active Substance: ESTRADIOL
     Dosage: UNK
  5. FISH OIL [Concomitant]
     Active Substance: FISH OIL
     Dosage: UNK
  6. ROSUVASTATIN [Concomitant]
     Active Substance: ROSUVASTATIN
     Dosage: UNK
  7. VERAPAMIL [Concomitant]
     Active Substance: VERAPAMIL HYDROCHLORIDE
     Dosage: UNK
  8. VITAMIN B12 [Concomitant]
     Active Substance: CYANOCOBALAMIN
     Dosage: UNK
  9. AMANTADINE [Concomitant]
     Active Substance: AMANTADINE
     Dosage: UNK
  10. LISINOPRIL [Concomitant]
     Active Substance: LISINOPRIL
     Dosage: UNK
  11. METAMUCIL [Concomitant]
     Active Substance: PLANTAGO SEED
     Dosage: UNK
  12. PRAVASTATIN [Concomitant]
     Active Substance: PRAVASTATIN
     Dosage: UNK
  13. TRAZODONE [Concomitant]
     Active Substance: TRAZODONE HYDROCHLORIDE
     Dosage: UNK
  14. BACTRIM [Concomitant]
     Active Substance: SULFAMETHOXAZOLE\TRIMETHOPRIM
     Dosage: UNK
  15. DONEPEZIL [Concomitant]
     Active Substance: DONEPEZIL
     Dosage: UNK
  16. FLECAINIDE [Concomitant]
     Active Substance: FLECAINIDE
     Dosage: UNK
  17. IPRATROPIUM [Concomitant]
     Active Substance: IPRATROPIUM
     Dosage: UNK
  18. LORAZEPAM [Concomitant]
     Active Substance: LORAZEPAM
     Dosage: UNK
  19. VENLAFAXINE HYDROCHLORIDE [Concomitant]
     Active Substance: VENLAFAXINE HYDROCHLORIDE
     Dosage: UNK
  20. VITAMIN B12 [Concomitant]
     Active Substance: CYANOCOBALAMIN
     Dosage: UNK
  21. VITAMIN C [Concomitant]
     Active Substance: ASCORBIC ACID
     Dosage: UNK
  22. VITAMIN C [Concomitant]
     Active Substance: ASCORBIC ACID
     Dosage: UNK
  23. ASPIRIN [Concomitant]
     Active Substance: ASPIRIN
     Dosage: UNK
  24. GLUCOSAMINE [Concomitant]
     Active Substance: GLUCOSAMINE
     Dosage: UNK
  25. GLUCOSAMINE [Concomitant]
     Active Substance: GLUCOSAMINE
     Dosage: UNK
  26. VITAMINS NOS [Concomitant]
     Active Substance: VITAMINS
     Dosage: UNK
  27. PROBIOTICS NOS [Concomitant]
     Active Substance: PROBIOTICS NOS
     Dosage: UNK
  28. VITAMIN D3 [Concomitant]
     Active Substance: CHOLECALCIFEROL
     Dosage: UNK
  29. VITAMIN D3 [Concomitant]
     Active Substance: CHOLECALCIFEROL
     Dosage: UNK
  30. CALCIUM +D [CALCIUM CARBONATE;COLECALCIFEROL] [Concomitant]
     Dosage: UNK

REACTIONS (8)
  - Memory impairment [Unknown]
  - Aphasia [Unknown]
  - Gait disturbance [Unknown]
  - Balance disorder [Unknown]
  - Speech disorder [Unknown]
  - Paraesthesia [Unknown]
  - Hypoaesthesia [Unknown]
  - Surgery [Unknown]

NARRATIVE: CASE EVENT DATE: 20240101
